FAERS Safety Report 16905790 (Version 4)
Quarter: 2019Q4

REPORT INFORMATION
  Report Type: Report from Study
  Country: CA (occurrence: CA)
  Receive Date: 20191010
  Receipt Date: 20191220
  Transmission Date: 20200122
  Serious: Yes (Death, Hospitalization)
  Sender: FDA-Public Use
  Company Number: CA-ACTELION-A-US2018-181052

PATIENT
  Age: 79 Year
  Sex: Male

DRUGS (10)
  1. UPTRAVI [Suspect]
     Active Substance: SELEXIPAG
     Dosage: 1000 MCG, BID
     Route: 048
  2. SYNTHROID [Concomitant]
     Active Substance: LEVOTHYROXINE SODIUM
  3. UPTRAVI [Suspect]
     Active Substance: SELEXIPAG
     Indication: PULMONARY ARTERIAL HYPERTENSION
     Dosage: 600 MCG, UNK
     Route: 048
     Dates: start: 20180924
  4. OPSUMIT [Suspect]
     Active Substance: MACITENTAN
     Indication: PULMONARY ARTERIAL HYPERTENSION
     Dosage: 10 MG, UNK
     Route: 048
     Dates: start: 20181030
  5. FUROSEMIDE. [Concomitant]
     Active Substance: FUROSEMIDE
  6. ELTROXIN [Concomitant]
     Active Substance: LEVOTHYROXINE
  7. SIMVASTATIN. [Concomitant]
     Active Substance: SIMVASTATIN
  8. SPIROTON [Concomitant]
  9. OXAZEPAM. [Concomitant]
     Active Substance: OXAZEPAM
  10. ADCIRCA [Concomitant]
     Active Substance: TADALAFIL

REACTIONS (3)
  - Faeces soft [Not Recovered/Not Resolved]
  - Death [Fatal]
  - Hospitalisation [Recovering/Resolving]

NARRATIVE: CASE EVENT DATE: 20181021
